FAERS Safety Report 24665499 (Version 5)
Quarter: 2025Q1

REPORT INFORMATION
  Report Type: Report from Study
  Country: FR (occurrence: FR)
  Receive Date: 20241126
  Receipt Date: 20250220
  Transmission Date: 20250408
  Serious: Yes (Hospitalization, Other)
  Sender: ALNYLAM PHARMACEUTICALS
  Company Number: FR-ALNYLAM PHARMACEUTICALS, INC.-ALN-2024-006577

PATIENT

DRUGS (5)
  1. ONPATTRO [Suspect]
     Active Substance: PATISIRAN SODIUM
     Indication: Product used for unknown indication
     Route: 065
  2. ONPATTRO [Suspect]
     Active Substance: PATISIRAN SODIUM
     Route: 065
     Dates: start: 20190902, end: 20190902
  3. AMIODARONE [Suspect]
     Active Substance: AMIODARONE
     Indication: Arrhythmia
     Dosage: 400 MILLIGRAM, QD
     Route: 065
     Dates: start: 2019
  4. AMIODARONE [Suspect]
     Active Substance: AMIODARONE
     Dosage: 20 MILLIGRAM, QD
     Route: 065
     Dates: start: 20191125
  5. AMIODARONE [Suspect]
     Active Substance: AMIODARONE
     Dosage: 100 MILLIGRAM, QD
     Route: 065
     Dates: start: 2019

REACTIONS (17)
  - Muscle atrophy [Unknown]
  - Fat tissue decreased [Unknown]
  - Oedema [Unknown]
  - Asthenia [Unknown]
  - Hypotension [Unknown]
  - Dysstasia [Unknown]
  - Hypokalaemia [Unknown]
  - Arrhythmia [Unknown]
  - Cardiac failure [Unknown]
  - Agitation [Unknown]
  - Malaise [Unknown]
  - Fatigue [Recovering/Resolving]
  - Therapy interrupted [Unknown]
  - Product availability issue [Unknown]
  - Weight decreased [Unknown]
  - Blood potassium decreased [Unknown]
  - Cardiac disorder [Unknown]

NARRATIVE: CASE EVENT DATE: 20191011
